FAERS Safety Report 11381674 (Version 1)
Quarter: 2015Q3

REPORT INFORMATION
  Report Type: Spontaneous
  Country: US (occurrence: US)
  Receive Date: 20150814
  Receipt Date: 20150814
  Transmission Date: 20151125
  Serious: No
  Sender: FDA-Public Use
  Company Number: US-GALDERMA-US14003703

PATIENT
  Age: 17 Year
  Sex: Male

DRUGS (7)
  1. DIFFERIN [Concomitant]
     Active Substance: ADAPALENE
     Indication: ACNE CYSTIC
     Dosage: 0.3%
     Route: 061
     Dates: start: 2012
  2. DIFFERIN [Concomitant]
     Active Substance: ADAPALENE
     Indication: ACNE
     Dosage: 0.3%
     Route: 061
     Dates: start: 2013, end: 2013
  3. ADAPALENE GEL, 0.3% [Suspect]
     Active Substance: ADAPALENE
     Indication: ACNE
     Dosage: 0.3%
     Route: 061
  4. ACCUTANE [Concomitant]
     Active Substance: ISOTRETINOIN
     Indication: ACNE CYSTIC
  5. DIFFERIN [Concomitant]
     Active Substance: ADAPALENE
     Indication: PAIN OF SKIN
     Dosage: 0.3%
     Route: 061
     Dates: start: 201406
  6. ACCUTANE [Concomitant]
     Active Substance: ISOTRETINOIN
     Indication: ACNE
     Route: 048
     Dates: start: 2013, end: 201406
  7. ACCUTANE [Concomitant]
     Active Substance: ISOTRETINOIN
     Indication: PAIN OF SKIN
     Route: 048

REACTIONS (3)
  - Skin irritation [Recovered/Resolved]
  - Dermatitis [Recovered/Resolved]
  - Drug ineffective [Recovered/Resolved]
